FAERS Safety Report 24870250 (Version 1)
Quarter: 2025Q1

REPORT INFORMATION
  Report Type: Spontaneous
  Country: US (occurrence: US)
  Receive Date: 20250121
  Receipt Date: 20250121
  Transmission Date: 20250408
  Serious: No
  Sender: JOHNSON AND JOHNSON
  Company Number: US-KENVUE-20241103218

PATIENT
  Age: 4 Decade
  Sex: Female

DRUGS (7)
  1. TYLENOL [Suspect]
     Active Substance: ACETAMINOPHEN
     Indication: Abdominal pain lower
     Route: 065
  2. TOZINAMERAN [Suspect]
     Active Substance: TOZINAMERAN
     Indication: Product used for unknown indication
     Dates: start: 20200731
  3. TOZINAMERAN [Suspect]
     Active Substance: TOZINAMERAN
     Dates: start: 20200821
  4. TOZINAMERAN [Suspect]
     Active Substance: TOZINAMERAN
     Dates: start: 20211004
  5. AMITRIPTYLINE HYDROCHLORIDE [Concomitant]
     Active Substance: AMITRIPTYLINE HYDROCHLORIDE
     Indication: Migraine
     Dosage: 10 MILLIGRAM, ONCE A DAY
     Route: 065
  6. NEXPLANON [Concomitant]
     Active Substance: ETONOGESTREL
     Indication: Contraception
  7. HYOSCYAMINE SULFATE [Concomitant]
     Active Substance: HYOSCYAMINE SULFATE
     Indication: Abdominal pain lower
     Route: 065

REACTIONS (1)
  - Therapeutic product effect variable [Unknown]
